FAERS Safety Report 8136990-3 (Version None)
Quarter: 2012Q1

REPORT INFORMATION
  Report Type: 
  Country: None (occurrence: None)
  Receive Date: 20120215
  Receipt Date: 20120206
  Transmission Date: 20120608
  Serious: Yes (Hospitalization)
  Sender: FDA-Public Use
  Company Number: US-BRISTOL-MYERS SQUIBB COMPANY-16386518

PATIENT
  Age: 4 Decade
  Sex: Female

DRUGS (1)
  1. ERBITUX [Suspect]
     Indication: BILE DUCT CANCER
     Dosage: DURATION:ABOUT 2 TO 3 MONTHS

REACTIONS (2)
  - NEPHROTIC SYNDROME [None]
  - DRUG DOSE OMISSION [None]
